FAERS Safety Report 16868644 (Version 1)
Quarter: 2019Q3

REPORT INFORMATION
  Report Type: Report from Study
  Country: IL (occurrence: IL)
  Receive Date: 20190930
  Receipt Date: 20190930
  Transmission Date: 20191005
  Serious: Yes (Life-Threatening, Other)
  Sender: FDA-Public Use
  Company Number: IL-RECRO GAINESVILLE LLC-REPH-2019-000210

PATIENT
  Age: 39 Year
  Sex: Female

DRUGS (3)
  1. OPIPRAMOL [Suspect]
     Active Substance: OPIPRAMOL
     Dosage: 400 MILLIGRAM, ONE TIME DOSE
     Route: 048
  2. VERAPAMIL HYDROCHLORIDE SUSTAINED RELEASE [Suspect]
     Active Substance: VERAPAMIL HYDROCHLORIDE
     Dosage: 2280 MILLIGRAM, ONE TIME DOSE
     Route: 048
  3. PROPRANOLOL [Suspect]
     Active Substance: PROPRANOLOL HYDROCHLORIDE
     Dosage: 120 MILLIGRAM, ONE TIME DOSE
     Route: 048

REACTIONS (9)
  - Cerebral infarction [Recovered/Resolved with Sequelae]
  - Hemiparesis [Not Recovered/Not Resolved]
  - Pulse absent [Recovered/Resolved]
  - Atrioventricular dissociation [Recovered/Resolved]
  - Bradycardia [Recovered/Resolved]
  - Stupor [Recovered/Resolved]
  - Suicide attempt [Recovered/Resolved with Sequelae]
  - Blood pressure immeasurable [Recovered/Resolved]
  - Hypotension [Recovered/Resolved]
